FAERS Safety Report 23026305 (Version 4)
Quarter: 2023Q4

REPORT INFORMATION
  Report Type: Spontaneous
  Country: US (occurrence: US)
  Receive Date: 20231004
  Receipt Date: 20231215
  Transmission Date: 20240110
  Serious: Yes (Hospitalization, Other)
  Sender: FDA-Public Use
  Company Number: US-ELI_LILLY_AND_COMPANY-US202309000092

PATIENT
  Age: 72 Year
  Sex: Female

DRUGS (6)
  1. ADCIRCA [Suspect]
     Active Substance: TADALAFIL
     Indication: Product used for unknown indication
     Dosage: UNK UNK, UNKNOWN
     Route: 065
  2. REMODULIN [Suspect]
     Active Substance: TREPROSTINIL
     Indication: Pulmonary arterial hypertension
     Dosage: 42.23 NG/ KG/MIN, CONTINUOUS
     Route: 058
     Dates: start: 202307
  3. REMODULIN [Suspect]
     Active Substance: TREPROSTINIL
     Dosage: 36.02 NG, DAILY
     Route: 058
     Dates: start: 202308
  4. REMODULIN [Suspect]
     Active Substance: TREPROSTINIL
     Dosage: 48.03 NG/KG/MIN, CONTINUOUS
     Route: 058
  5. REMODULIN [Suspect]
     Active Substance: TREPROSTINIL
     Dosage: 55.24 NG/KG/MIN, CONTINUOUS
     Route: 058
  6. REMODULIN [Suspect]
     Active Substance: TREPROSTINIL
     Dosage: 56 NG/KG/MIN, CONTINUOUS
     Route: 058

REACTIONS (17)
  - Fall [Unknown]
  - Syncope [Unknown]
  - Dehydration [Unknown]
  - Diarrhoea [Not Recovered/Not Resolved]
  - Asthenia [Unknown]
  - Vomiting [Unknown]
  - Dyspnoea exertional [Unknown]
  - Catheter site pain [Unknown]
  - Catheter site erythema [Unknown]
  - Catheter site infection [Unknown]
  - Catheter site swelling [Unknown]
  - Catheter site warmth [Unknown]
  - Catheter site infection [Recovering/Resolving]
  - Insomnia [Unknown]
  - Pain [Unknown]
  - Headache [Unknown]
  - Myalgia [Unknown]

NARRATIVE: CASE EVENT DATE: 20231206
